FAERS Safety Report 24305412 (Version 2)
Quarter: 2024Q4

REPORT INFORMATION
  Report Type: Report from Study
  Country: DE (occurrence: DE)
  Receive Date: 20240911
  Receipt Date: 20241030
  Transmission Date: 20250115
  Serious: Yes (Hospitalization, Other)
  Sender: NORDIC PHARMA
  Company Number: DE-002147023-NVSC2023DE098021

PATIENT
  Sex: Female

DRUGS (20)
  1. METHOTREXATE [Suspect]
     Active Substance: METHOTREXATE
     Indication: Product used for unknown indication
     Route: 065
     Dates: start: 201701
  2. ETANERCEPT [Concomitant]
     Active Substance: ETANERCEPT
     Indication: Product used for unknown indication
     Dosage: 50 MG
     Route: 065
     Dates: start: 202202, end: 202203
  3. ETANERCEPT [Concomitant]
     Active Substance: ETANERCEPT
     Indication: Product used for unknown indication
     Dosage: 50 MG
     Route: 065
     Dates: start: 201810, end: 201904
  4. ETANERCEPT [Concomitant]
     Active Substance: ETANERCEPT
     Indication: Product used for unknown indication
     Dosage: UNK
     Route: 065
  5. ERELZI [Concomitant]
     Active Substance: ETANERCEPT-SZZS
     Indication: Cough
     Dosage: 25 MG
     Route: 065
     Dates: start: 202210, end: 202302
  6. ERELZI [Concomitant]
     Active Substance: ETANERCEPT-SZZS
     Indication: Cough
     Dosage: 50 MG, QW
     Route: 065
     Dates: start: 20230815, end: 20231121
  7. ERELZI [Concomitant]
     Active Substance: ETANERCEPT-SZZS
     Indication: Cough
     Dosage: UNK
     Route: 065
  8. ERELZI [Concomitant]
     Active Substance: ETANERCEPT-SZZS
     Indication: Cough
     Dosage: 50 MG
     Route: 065
     Dates: start: 202203, end: 202207
  9. RINVOQ [Concomitant]
     Active Substance: UPADACITINIB
     Indication: Product used for unknown indication
     Dosage: 15 MG
     Route: 065
     Dates: start: 202007, end: 202012
  10. SIMPONI [Concomitant]
     Active Substance: GOLIMUMAB
     Indication: Product used for unknown indication
     Dosage: 50 MG
     Route: 065
     Dates: start: 201601, end: 201603
  11. AMITRIPTYLINE EMBONATE [Concomitant]
     Indication: Product used for unknown indication
     Route: 065
  12. METOPROLOL [Concomitant]
     Active Substance: METOPROLOL
     Indication: Product used for unknown indication
     Route: 065
  13. ASPIRIN [Concomitant]
     Active Substance: ASPIRIN
     Indication: Product used for unknown indication
     Route: 065
  14. PANTOPRAZOLE [Concomitant]
     Active Substance: PANTOPRAZOLE
     Indication: Product used for unknown indication
     Route: 065
  15. ORENCIA [Concomitant]
     Active Substance: ABATACEPT
     Indication: Product used for unknown indication
     Dosage: 125 MG/1 TIME PER WEEK
     Route: 050
     Dates: start: 20231130
  16. PREDNISOLONE [Concomitant]
     Active Substance: PREDNISOLONE
     Indication: Product used for unknown indication
     Route: 065
  17. SIMVASTATIN [Concomitant]
     Active Substance: SIMVASTATIN
     Indication: Product used for unknown indication
     Route: 065
  18. METHOTREXATE [Concomitant]
     Active Substance: METHOTREXATE
     Indication: Product used for unknown indication
     Dosage: 5 MG
     Route: 065
     Dates: start: 201601
  19. METHOTREXATE [Concomitant]
     Active Substance: METHOTREXATE
     Indication: Product used for unknown indication
     Route: 065
     Dates: start: 20180117
  20. METHOTREXATE [Concomitant]
     Active Substance: METHOTREXATE
     Indication: Product used for unknown indication
     Route: 065
     Dates: start: 202401

REACTIONS (20)
  - Spinal osteoarthritis [Unknown]
  - Polyneuropathy [Unknown]
  - COVID-19 [Unknown]
  - Hiatus hernia [Unknown]
  - Erosive duodenitis [Unknown]
  - Intervertebral disc protrusion [Unknown]
  - Pain [Unknown]
  - COVID-19 [Unknown]
  - Spinal osteoarthritis [Unknown]
  - Pyrexia [Unknown]
  - Cervicobrachial syndrome [Unknown]
  - Gastritis [Unknown]
  - Bronchitis chronic [Unknown]
  - Cholelithiasis [Unknown]
  - Cough [Unknown]
  - Reactive gastropathy [Unknown]
  - Spinal osteoarthritis [Unknown]
  - Allergy to arthropod sting [Recovered/Resolved]
  - Urinary tract infection [Recovered/Resolved]
  - COVID-19 [Unknown]

NARRATIVE: CASE EVENT DATE: 20220428
